FAERS Safety Report 5261242-9 (Version None)
Quarter: 2007Q1

REPORT INFORMATION
  Report Type: 
  Country: None (occurrence: None)
  Receive Date: 20070309
  Receipt Date: 20070227
  Transmission Date: 20070707
  Serious: Yes (Hospitalization, Other)
  Sender: FDA-Public Use
  Company Number: US-PFIZER INC-2007016141

PATIENT
  Sex: Male

DRUGS (6)
  1. CHANTIX [Suspect]
     Indication: EX-SMOKER
     Dates: start: 20070101, end: 20070201
  2. ACIPHEX [Concomitant]
  3. ALBUTEROL [Concomitant]
  4. BUPROPION HCL [Concomitant]
  5. CLOPIDOGREL [Concomitant]
  6. CYCLOBENZAPRINE HCL [Concomitant]

REACTIONS (3)
  - CHEST PAIN [None]
  - MYOCARDIAL INFARCTION [None]
  - STENT OCCLUSION [None]
